FAERS Safety Report 7208358-5 (Version None)
Quarter: 2011Q1

REPORT INFORMATION
  Report Type: 
  Country: None (occurrence: None)
  Receive Date: 20110104
  Receipt Date: 20101221
  Transmission Date: 20110831
  Serious: Yes (Hospitalization)
  Sender: FDA-Public Use
  Company Number: PHHY2010JP84153

PATIENT
  Sex: Male

DRUGS (7)
  1. CRAVIT [Concomitant]
     Indication: ERYTHEMA
     Dosage: UNK
     Route: 048
     Dates: start: 20080423
  2. ALESION [Concomitant]
     Indication: ERYTHEMA
     Dosage: UNK
     Route: 048
     Dates: start: 20080423
  3. TEGRETOL [Suspect]
     Indication: BIPOLAR I DISORDER
     Dosage: UNK
     Route: 048
     Dates: start: 20080301, end: 20080428
  4. DEPAKENE [Concomitant]
     Indication: BIPOLAR I DISORDER
     Dosage: UNK
     Route: 048
  5. BIBITTOACE [Concomitant]
     Indication: BIPOLAR I DISORDER
     Dosage: UNK
     Route: 048
  6. FLUNITRAZEPAM [Concomitant]
     Indication: BIPOLAR I DISORDER
     Dosage: UNK
     Route: 048
  7. LITHIUM CARBONATE [Concomitant]
     Indication: BIPOLAR I DISORDER
     Dosage: UNK
     Route: 048

REACTIONS (21)
  - PAPULE [None]
  - RASH [None]
  - BLOOD THYROID STIMULATING HORMONE INCREASED [None]
  - PYREXIA [None]
  - GINGIVITIS [None]
  - GOITRE [None]
  - LYMPHOCYTE STIMULATION TEST POSITIVE [None]
  - PIGMENTATION DISORDER [None]
  - FACE OEDEMA [None]
  - STOMATITIS [None]
  - RASH ERYTHEMATOUS [None]
  - ERYTHEMA [None]
  - SKIN EXFOLIATION [None]
  - THYROIDITIS [None]
  - CYTOMEGALOVIRUS INFECTION [None]
  - LYMPHOCYTE MORPHOLOGY ABNORMAL [None]
  - HUMAN HERPES VIRUS 6 SEROLOGY POSITIVE [None]
  - DRUG RASH WITH EOSINOPHILIA AND SYSTEMIC SYMPTOMS [None]
  - RASH PUSTULAR [None]
  - LYMPHADENOPATHY [None]
  - LYMPHOCYTIC INFILTRATION [None]
